FAERS Safety Report 6590766-7 (Version None)
Quarter: 2010Q1

REPORT INFORMATION
  Report Type: 
  Country: None (occurrence: None)
  Receive Date: 20100219
  Receipt Date: 20100127
  Transmission Date: 20100710
  Serious: Yes (Hospitalization)
  Sender: FDA-Public Use
  Company Number: FR-BAYER-200943362GPV

PATIENT
  Age: 72 Year
  Sex: Male
  Weight: 79 kg

DRUGS (12)
  1. SORAFENIB [Suspect]
     Indication: HEPATIC NEOPLASM MALIGNANT
     Dosage: TOTAL DAILY DOSE: 800 MG
     Route: 048
     Dates: start: 20090731, end: 20091109
  2. SORAFENIB [Suspect]
     Dosage: TOTAL DAILY DOSE: 400 MG
     Route: 048
     Dates: start: 20100114
  3. SORAFENIB [Suspect]
     Dates: start: 20091211
  4. TRIATEC [Concomitant]
     Indication: HYPERTENSION
     Route: 048
     Dates: start: 19940101
  5. AMLOR [Concomitant]
     Indication: HYPERTENSION
     Route: 048
     Dates: start: 19940101
  6. PROZAC [Concomitant]
     Indication: PROPHYLAXIS
     Route: 048
     Dates: start: 20090101
  7. TANAKAN [Concomitant]
     Indication: PROPHYLAXIS
     Route: 048
  8. PIRACETAN [Concomitant]
     Indication: PROPHYLAXIS
     Route: 048
  9. GLUCOR [Concomitant]
     Indication: TYPE 2 DIABETES MELLITUS
     Dates: start: 19890101
  10. METFORMIN HCL [Concomitant]
     Indication: TYPE 2 DIABETES MELLITUS
     Dates: start: 19890101
  11. METEOSPASMYL [Concomitant]
     Indication: ABDOMINAL DISTENSION
     Route: 048
     Dates: start: 20090917, end: 20091023
  12. FORLAX [Concomitant]
     Indication: CONSTIPATION
     Route: 048
     Dates: start: 20091013

REACTIONS (2)
  - ABDOMINAL DISCOMFORT [None]
  - PULMONARY EMBOLISM [None]
